FAERS Safety Report 4662540-X (Version None)
Quarter: 2005Q2

REPORT INFORMATION
  Report Type: 
  Country: None (occurrence: None)
  Receive Date: 20050512
  Receipt Date: 20050429
  Transmission Date: 20051028
  Serious: Yes (Death, Life-Threatening)
  Sender: FDA-Public Use
  Company Number: 2005041499

PATIENT
  Age: 73 Year
  Sex: Male

DRUGS (5)
  1. ZOLOFT [Suspect]
     Indication: DEPRESSION
     Dosage: 50 MG (1 IN 1 D), ORAL
     Route: 048
     Dates: start: 20040318, end: 20040321
  2. ZOLOFT [Suspect]
     Indication: PSYCHOTIC DISORDER
     Dosage: 50 MG (1 IN 1 D), ORAL
     Route: 048
     Dates: start: 20040318, end: 20040321
  3. RAMIPRIL [Suspect]
     Indication: ILL-DEFINED DISORDER
     Dosage: 12.5 MG (1 IN 1 D), ORAL
     Route: 048
     Dates: end: 20040416
  4. OMEPRAZOLE [Concomitant]
  5. CALCIUM (CALCIUM) [Concomitant]

REACTIONS (9)
  - ANGINA PECTORIS [None]
  - COLD SWEAT [None]
  - ELECTROCARDIOGRAM CHANGE [None]
  - LABORATORY TEST ABNORMAL [None]
  - MAJOR DEPRESSION [None]
  - MYOCARDIAL INFARCTION [None]
  - POST PROCEDURAL COMPLICATION [None]
  - RENAL FAILURE ACUTE [None]
  - TACHYCARDIA [None]
